FAERS Safety Report 5702778-3 (Version None)
Quarter: 2008Q2

REPORT INFORMATION
  Report Type: 
  Country: None (occurrence: None)
  Receive Date: 20080411
  Receipt Date: 20080403
  Transmission Date: 20081010
  Serious: Yes (Hospitalization)
  Sender: FDA-Public Use
  Company Number: B0516083A

PATIENT
  Age: 26 Year
  Sex: Male

DRUGS (1)
  1. DEROXAT [Suspect]
     Indication: DEPRESSION
     Route: 048
     Dates: start: 20080301

REACTIONS (2)
  - LUNG DISORDER [None]
  - PLEURAL EFFUSION [None]
